FAERS Safety Report 25214548 (Version 3)
Quarter: 2025Q2

REPORT INFORMATION
  Report Type: Report from Study
  Country: US (occurrence: US)
  Receive Date: 20250418
  Receipt Date: 20250527
  Transmission Date: 20250716
  Serious: Yes (Hospitalization, Other)
  Sender: EXELIXIS
  Company Number: US-EXELIXIS-EXL-2025-006777

PATIENT
  Sex: Male

DRUGS (1)
  1. CABOMETYX [Suspect]
     Active Substance: CABOZANTINIB S-MALATE
     Indication: Renal cancer
     Dosage: 40 MG, QD
     Route: 048
     Dates: start: 202503

REACTIONS (8)
  - Neuropathy peripheral [Unknown]
  - Thrombosis [Unknown]
  - Hospitalisation [Unknown]
  - Pneumonia [Unknown]
  - Dysphonia [Unknown]
  - Diarrhoea [Unknown]
  - Constipation [Unknown]
  - Dry skin [Unknown]
